FAERS Safety Report 6266361-6 (Version None)
Quarter: 2009Q3

REPORT INFORMATION
  Report Type: 
  Country: None (occurrence: None)
  Receive Date: 20090709
  Receipt Date: 20090626
  Transmission Date: 20100115
  Serious: Yes (Death)
  Sender: FDA-Public Use
  Company Number: 2009001913

PATIENT
  Age: 63 Year
  Sex: Female
  Weight: 58.9 kg

DRUGS (2)
  1. ERLOTINIB (ERLOTINIB) (TABLET) (ERLOTINIB) [Suspect]
     Indication: BRONCHIOLOALVEOLAR CARCINOMA
     Dosage: (150 MG, QD), ORAL
     Route: 048
     Dates: start: 20090508
  2. BEVACIZUMAB [Suspect]
     Indication: BRONCHIOLOALVEOLAR CARCINOMA
     Dosage: (875 MG, Q21D)
     Dates: start: 20090508

REACTIONS (7)
  - BLOOD UREA INCREASED [None]
  - CONSTIPATION [None]
  - HEADACHE [None]
  - NAUSEA [None]
  - SMALL INTESTINAL OBSTRUCTION [None]
  - SUDDEN DEATH [None]
  - UNRESPONSIVE TO STIMULI [None]
